FAERS Safety Report 8675211 (Version 3)
Quarter: 2012Q4

REPORT INFORMATION
  Report Type: 
  Country: FR (occurrence: FR)
  Receive Date: 20120720
  Receipt Date: 20121005
  Transmission Date: 20130627
  Serious: Yes (Hospitalization)
  Sender: FDA-Public Use
  Company Number: FR-EISAI INC-E2020-11084-SPO-FR

PATIENT
  Age: 83 Year
  Sex: Female

DRUGS (12)
  1. ARICEPT [Suspect]
     Indication: DEMENTIA ALZHEIMER^S TYPE
     Dosage: unknown
     Route: 048
     Dates: start: 201002, end: 201207
  2. DEROXAT [Concomitant]
     Indication: ANXIODEPRESSIVE SYNDROME
  3. COVERSYL [Concomitant]
     Indication: BLOOD PRESSURE HIGH
     Dosage: unknown
     Route: 048
  4. STILNOX [Concomitant]
  5. EUPANTHOL [Concomitant]
  6. TAHOR [Concomitant]
     Indication: HYPERCHOLESTEROLEMIA
     Dosage: unknown
     Route: 048
  7. SERETIDE [Concomitant]
     Indication: EXACERBATION OF ASTHMA
     Dates: start: 201204
  8. BRICANYL [Concomitant]
  9. ATARAX [Concomitant]
     Indication: ANXIODEPRESSIVE SYNDROME
  10. PULMICORT [Concomitant]
     Indication: ASTHMA
     Dosage: unknown
     Dates: start: 201204
  11. ATORVASTATIN [Concomitant]
     Indication: HYPERCHOLESTEROLEMIA
     Route: 048
  12. PERINDOPRIL [Concomitant]
     Indication: BLOOD PRESSURE HIGH
     Route: 048

REACTIONS (1)
  - Electrocardiogram QT prolonged [Recovered/Resolved]
